FAERS Safety Report 6128135-6 (Version None)
Quarter: 2009Q1

REPORT INFORMATION
  Report Type: 
  Country: None (occurrence: None)
  Receive Date: 20090320
  Receipt Date: 20090320
  Transmission Date: 20090719
  Serious: Yes (Life-Threatening, Hospitalization)
  Sender: FDA-Public Use
  Company Number: None

PATIENT
  Age: 26 Year
  Sex: Female
  Weight: 99.7913 kg

DRUGS (1)
  1. MIRENA [Suspect]
     Indication: CONTRACEPTION
     Dates: start: 20080512, end: 20090108

REACTIONS (5)
  - BLOOD PRESSURE SYSTOLIC DECREASED [None]
  - NECK PAIN [None]
  - PYREXIA [None]
  - TOXIC SHOCK SYNDROME [None]
  - VOMITING [None]
